FAERS Safety Report 4679508-X (Version None)
Quarter: 2005Q2

REPORT INFORMATION
  Report Type: 
  Country: None (occurrence: None)
  Receive Date: 20050602
  Receipt Date: 20050524
  Transmission Date: 20051028
  Serious: Yes (Hospitalization)
  Sender: FDA-Public Use
  Company Number: SE-MERCK-0505SWE00020

PATIENT
  Age: 68 Year
  Sex: Male

DRUGS (9)
  1. VIOXX [Suspect]
     Indication: INTERVERTEBRAL DISC PROTRUSION
     Route: 048
     Dates: start: 20000701, end: 20041007
  2. ALFUZOSIN HYDROCHLORIDE [Concomitant]
     Route: 065
  3. ZOLPIDEM TARTRATE [Concomitant]
     Route: 065
  4. LYMECYCLINE [Concomitant]
     Route: 065
  5. ACETAMINOPHEN AND CAFFEINE AND CARISOPRODOL [Concomitant]
     Route: 065
  6. BROMHEXINE HYDROCHLORIDE AND EPHEDRINE HYDROCHLORIDE [Concomitant]
     Route: 065
  7. CYANOCOBALAMIN [Concomitant]
     Route: 065
  8. ACETYLCYSTEINE [Concomitant]
     Route: 065
  9. SILDENAFIL CITRATE [Concomitant]
     Route: 065

REACTIONS (8)
  - ATRIAL FIBRILLATION [None]
  - CEREBRAL INFARCTION [None]
  - CHRONIC OBSTRUCTIVE PULMONARY DISEASE [None]
  - PALPITATIONS [None]
  - SUPRAVENTRICULAR EXTRASYSTOLES [None]
  - TACHYARRHYTHMIA [None]
  - TRANSIENT ISCHAEMIC ATTACK [None]
  - VENTRICULAR EXTRASYSTOLES [None]
